FAERS Safety Report 5478167-6 (Version None)
Quarter: 2007Q4

REPORT INFORMATION
  Report Type: 
  Country: None (occurrence: None)
  Receive Date: 20071005
  Receipt Date: 20070209
  Transmission Date: 20080405
  Serious: No
  Sender: FDA-Public Use
  Company Number: US-BRISTOL-MYERS SQUIBB COMPANY-13674957

PATIENT
  Age: 66 Year
  Sex: Female

DRUGS (1)
  1. AVAPRO [Suspect]

REACTIONS (2)
  - CONSTIPATION [None]
  - DYSPEPSIA [None]
